FAERS Safety Report 6445557-4 (Version None)
Quarter: 2009Q4

REPORT INFORMATION
  Report Type: 
  Country: None (occurrence: None)
  Receive Date: 20091110
  Receipt Date: 20090724
  Transmission Date: 20100525
  Serious: No
  Sender: FDA-Public Use
  Company Number: 1000007739

PATIENT
  Age: 52 Year
  Sex: Female

DRUGS (7)
  1. SAVELLA [Suspect]
     Indication: NEURALGIA
     Dosage: SEE IMAGE
     Route: 048
     Dates: start: 20090707, end: 20090711
  2. SAVELLA [Suspect]
     Indication: NEURALGIA
     Dosage: SEE IMAGE
     Route: 048
     Dates: start: 20090712, end: 20090719
  3. SAVELLA [Suspect]
     Indication: NEURALGIA
     Dosage: SEE IMAGE
     Route: 048
     Dates: start: 20090720
  4. LORAZEPAM [Concomitant]
  5. PREVACID [Concomitant]
  6. VITAMIN D [Concomitant]
  7. PEPCID [Concomitant]

REACTIONS (5)
  - CONSTIPATION [None]
  - DIZZINESS [None]
  - INSOMNIA [None]
  - IRRITABILITY [None]
  - MALAISE [None]
